FAERS Safety Report 8208144-3 (Version None)
Quarter: 2012Q1

REPORT INFORMATION
  Report Type: 
  Country: None (occurrence: None)
  Receive Date: 20120314
  Receipt Date: 20120307
  Transmission Date: 20120608
  Serious: Yes (Hospitalization, Other)
  Sender: FDA-Public Use
  Company Number: PHEH2007US03697

PATIENT
  Sex: Female

DRUGS (82)
  1. CHEMOTHERAPEUTICS NOS [Concomitant]
  2. OMNICEF [Concomitant]
  3. ZYRTEC [Concomitant]
  4. NORMODYNE [Concomitant]
  5. MIRALAX [Concomitant]
  6. VERSAPEN [Concomitant]
  7. METHADON HCL TAB [Concomitant]
  8. LASIX [Concomitant]
  9. ALBUTEROL [Concomitant]
  10. PENICILLIN [Concomitant]
  11. EFFEXOR [Concomitant]
  12. ATIVAN [Concomitant]
  13. FLEXERIL [Concomitant]
  14. DYAZIDE [Concomitant]
  15. HYDROCODONE BITARTRATE [Concomitant]
  16. TIOPRONIN [Concomitant]
  17. DURAGESIC-100 [Concomitant]
  18. GEMZAR [Concomitant]
  19. FEMARA [Concomitant]
  20. CELEXA [Concomitant]
     Indication: CHRONIC OBSTRUCTIVE PULMONARY DISEASE
     Route: 048
  21. COZAAR [Concomitant]
  22. PRILOSEC [Concomitant]
  23. NEURONTIN [Concomitant]
  24. BACLOFEN [Concomitant]
  25. REGLAN [Concomitant]
  26. MONOPRIL [Concomitant]
     Indication: HYPERTENSION
  27. MOBIC [Concomitant]
  28. ZELNORM [Concomitant]
  29. HERCEPTIN [Concomitant]
  30. SPIRIVA [Concomitant]
  31. DEXAMETHASONE [Concomitant]
  32. CHLORPHEDRINE SR [Concomitant]
  33. TAXOL [Concomitant]
  34. CYTOXAN [Concomitant]
  35. KADIAN ^KNOLL^ [Concomitant]
  36. ATROVENT [Concomitant]
  37. THEOPHYLLINE [Concomitant]
  38. BEXTRA [Concomitant]
  39. LEVAQUIN [Concomitant]
     Dosage: 500 MG, UNK
  40. PROTON PUMP INHIBITORS [Concomitant]
  41. ACETAMINOPHEN [Concomitant]
  42. DILAUDID [Concomitant]
  43. TAXOTERE [Concomitant]
  44. CLINDAMYCIN [Concomitant]
  45. VALIUM [Concomitant]
     Dosage: 5 MG, PRN
     Route: 048
  46. ZITHROMAX [Concomitant]
  47. MORPHINE SULFATE [Concomitant]
  48. XOPENEX [Concomitant]
  49. POTASSIUM CHLORIDE [Concomitant]
  50. ROXICODONE [Concomitant]
  51. PREDNISONE [Concomitant]
  52. TORADOL [Concomitant]
     Dosage: 60 MG, ONCE/SINGLE
     Route: 030
  53. PREVACID [Concomitant]
  54. PERCOCET [Concomitant]
  55. ADRIAMYCIN PFS [Concomitant]
  56. NEXIUM [Concomitant]
     Dosage: 40 MG, QD
     Route: 048
  57. ROBITUSSIN ^ROBINS^ [Concomitant]
  58. OXYGEN THERAPY [Concomitant]
  59. ZOMETA [Suspect]
     Indication: BREAST CANCER
     Route: 042
     Dates: start: 20050101
  60. WELLBUTRIN [Concomitant]
  61. OXYCONTIN [Concomitant]
     Dosage: 40 MG, BID
  62. KETEK [Concomitant]
  63. IBUPROFEN [Concomitant]
  64. LORTAB [Concomitant]
  65. BACTRIM [Concomitant]
  66. ARMODAFINIL [Concomitant]
     Dosage: 200 MG, QD
     Route: 048
  67. AMITIZA [Concomitant]
     Dosage: 24 MEQ, QD
     Route: 048
  68. ICAR [Concomitant]
     Route: 048
  69. COMPAZINE [Concomitant]
  70. NORCO [Concomitant]
     Indication: PAIN
     Route: 048
  71. ZESTRIL [Concomitant]
  72. LOTENSIN [Concomitant]
  73. AREDIA [Suspect]
     Indication: BREAST CANCER
     Route: 042
     Dates: start: 20050101
  74. LABETALOL HCL [Concomitant]
  75. CIPRO [Concomitant]
  76. SKELAXIN [Concomitant]
  77. POTASSIUM CHLORIDE [Concomitant]
  78. METHOTREXATE [Concomitant]
  79. XANAX [Concomitant]
     Route: 048
  80. PULMICORT [Concomitant]
  81. OXYMORPHONE [Concomitant]
  82. CLONIDINE [Concomitant]

REACTIONS (48)
  - GENERAL PHYSICAL HEALTH DETERIORATION [None]
  - FRACTURE NONUNION [None]
  - MALAISE [None]
  - BONE DISORDER [None]
  - DECREASED INTEREST [None]
  - HEADACHE [None]
  - PARAESTHESIA [None]
  - POSTMENOPAUSE [None]
  - ANAEMIA [None]
  - OEDEMA PERIPHERAL [None]
  - OSTEONECROSIS OF JAW [None]
  - OSTEOMYELITIS [None]
  - CONVULSION [None]
  - BONE CANCER METASTATIC [None]
  - COUGH [None]
  - SINUSITIS [None]
  - CANDIDIASIS [None]
  - CHRONIC OBSTRUCTIVE PULMONARY DISEASE [None]
  - CARDIOMEGALY [None]
  - HYPERLIPIDAEMIA [None]
  - WEIGHT DECREASED [None]
  - POOR DENTAL CONDITION [None]
  - BONE PAIN [None]
  - LUNG NEOPLASM [None]
  - INJURY [None]
  - PAIN [None]
  - WHEEZING [None]
  - RESPIRATORY FAILURE [None]
  - ODYNOPHAGIA [None]
  - JAUNDICE [None]
  - HYPERTHYROIDISM [None]
  - LARYNGITIS [None]
  - TREMOR [None]
  - VOMITING [None]
  - METASTASES TO MENINGES [None]
  - CEREBRAL ATROPHY [None]
  - METASTASES TO BONE [None]
  - HYPOAESTHESIA [None]
  - NAUSEA [None]
  - CONSTIPATION [None]
  - ANXIETY [None]
  - ACTINOMYCOSIS [None]
  - BRONCHITIS [None]
  - PYREXIA [None]
  - MUCOSAL INFLAMMATION [None]
  - DYSPNOEA [None]
  - PNEUMONITIS [None]
  - HEPATIC LESION [None]
